FAERS Safety Report 5530256-3 (Version None)
Quarter: 2007Q4

REPORT INFORMATION
  Report Type: 
  Country: None (occurrence: None)
  Receive Date: 20071127
  Receipt Date: 20071127
  Transmission Date: 20080405
  Serious: Yes (Hospitalization)
  Sender: FDA-Public Use
  Company Number: None

PATIENT
  Age: 40 Year
  Sex: Male
  Weight: 94 kg

DRUGS (5)
  1. CEFEPIME [Suspect]
     Indication: DEVICE RELATED INFECTION
     Dosage: 2 GRAMS Q12H IV
     Route: 042
     Dates: start: 20070816, end: 20070916
  2. CEFEPIME [Suspect]
     Indication: WOUND INFECTION PSEUDOMONAS
     Dosage: 2 GRAMS Q12H IV
     Route: 042
     Dates: start: 20070816, end: 20070916
  3. VANCOMYCIN [Concomitant]
  4. CEFAZOLIN [Concomitant]
  5. CIPROFLOXACIN [Concomitant]

REACTIONS (2)
  - CATHETER RELATED INFECTION [None]
  - PANCYTOPENIA [None]
